FAERS Safety Report 4635809-2 (Version None)
Quarter: 2005Q2

REPORT INFORMATION
  Report Type: 
  Country: None (occurrence: None)
  Receive Date: 20050415
  Receipt Date: 20050404
  Transmission Date: 20051028
  Serious: Yes (Other)
  Sender: FDA-Public Use
  Company Number: FR-JNJFOC-20050401411

PATIENT
  Age: 55 Year
  Sex: Female

DRUGS (2)
  1. INFLIXIMAB [Suspect]
     Indication: RHEUMATOID ARTHRITIS
     Route: 042
  2. PREDNISONE TAB [Concomitant]

REACTIONS (5)
  - LUPUS-LIKE SYNDROME [None]
  - RASH PAPULAR [None]
  - RAYNAUD'S PHENOMENON [None]
  - SKIN FISSURES [None]
  - ULCER [None]
